FAERS Safety Report 9820280 (Version 5)
Quarter: 2014Q1

REPORT INFORMATION
  Report Type: Report from Study
  Country: CA (occurrence: CA)
  Receive Date: 20140116
  Receipt Date: 20140312
  Transmission Date: 20141002
  Serious: Yes (Hospitalization, Other)
  Sender: FDA-Public Use
  Company Number: CA-UCBSA-108122

PATIENT
  Age: 46 Year
  Sex: Female
  Weight: 68 kg

DRUGS (7)
  1. CIMZIA [Suspect]
     Indication: CROHN^S DISEASE
     Dosage: 400 MG EVERY 2 WEEKS
     Route: 058
     Dates: start: 20131219, end: 20140212
  2. VIT B12 [Concomitant]
     Indication: VITAMIN SUPPLEMENTATION
     Dosage: Q MONTH
     Route: 030
  3. VIT B12 [Concomitant]
     Indication: ANAEMIA
     Dosage: Q MONTH
     Route: 030
  4. VIT D [Concomitant]
     Indication: VITAMIN SUPPLEMENTATION
     Dosage: DOSE: 10.000 IU
     Route: 048
  5. VIT D [Concomitant]
     Indication: OSTEOPOROSIS PROPHYLAXIS
     Dosage: DOSE: 10.000 IU
     Route: 048
  6. TAMIFLU [Concomitant]
     Dates: start: 201401
  7. MACROBID [Concomitant]
     Dates: start: 201401

REACTIONS (7)
  - H1N1 influenza [Recovered/Resolved]
  - Urinary tract infection [Recovered/Resolved]
  - Anal fistula [Not Recovered/Not Resolved]
  - Abdominal discomfort [Recovering/Resolving]
  - Weight decreased [Recovering/Resolving]
  - Injection site erythema [Recovered/Resolved]
  - Drug ineffective [Recovered/Resolved]
